FAERS Safety Report 13753182 (Version 1)
Quarter: 2017Q3

REPORT INFORMATION
  Report Type: Spontaneous
  Country: QA (occurrence: QA)
  Receive Date: 20170713
  Receipt Date: 20170713
  Transmission Date: 20171127
  Serious: Yes (Life-Threatening, Congenital Anomaly, Other)
  Sender: FDA-Public Use
  Company Number: QA-BRISTOL-MYERS SQUIBB COMPANY-BMS-2017-062208

PATIENT
  Sex: Male

DRUGS (2)
  1. WARFARIN SODIUM. [Suspect]
     Active Substance: WARFARIN SODIUM
     Indication: PRODUCT USED FOR UNKNOWN INDICATION
     Dosage: 10 MG, QD
     Route: 064
  2. WARFARIN SODIUM. [Suspect]
     Active Substance: WARFARIN SODIUM
     Indication: PRODUCT USED FOR UNKNOWN INDICATION
     Route: 064

REACTIONS (9)
  - Cerebral palsy [Unknown]
  - Subarachnoid haemorrhage neonatal [Unknown]
  - Intraventricular haemorrhage neonatal [Unknown]
  - Microcephaly [Unknown]
  - Premature baby [Unknown]
  - Subdural haematoma [Unknown]
  - Periventricular leukomalacia [Unknown]
  - Transfusion [Unknown]
  - Foetal exposure during pregnancy [Unknown]
